FAERS Safety Report 21289712 (Version 4)
Quarter: 2025Q2

REPORT INFORMATION
  Report Type: Spontaneous
  Country: US (occurrence: US)
  Receive Date: 20220902
  Receipt Date: 20250523
  Transmission Date: 20250716
  Serious: Yes (Other)
  Sender: UCB
  Company Number: US-UCBSA-2022052036

PATIENT
  Age: 41 Year
  Sex: Male
  Weight: 41.53 kg

DRUGS (18)
  1. FINTEPLA [Suspect]
     Active Substance: FENFLURAMINE
     Indication: Product used for unknown indication
     Dosage: 5 MILLILITER, 2X/DAY (BID)
     Dates: start: 20210623
  2. FINTEPLA [Suspect]
     Active Substance: FENFLURAMINE
     Dosage: 5 MILLILITER, 2X/DAY (BID)
  3. FINTEPLA [Suspect]
     Active Substance: FENFLURAMINE
     Dosage: 5 MILLILITER, 2X/DAY (BID)
  4. FINTEPLA [Suspect]
     Active Substance: FENFLURAMINE
     Dosage: 5 MILLILITER, 2X/DAY (BID)
     Dates: start: 20240930
  5. SYNTHROID [Concomitant]
     Active Substance: LEVOTHYROXINE SODIUM
     Indication: Thyroid disorder
     Route: 048
  6. BACLOFEN [Concomitant]
     Active Substance: BACLOFEN
     Indication: Product used for unknown indication
     Dosage: 10 MILLIGRAM, 2X/DAY (BID)
     Route: 048
  7. BRIVIACT [Concomitant]
     Active Substance: BRIVARACETAM
     Indication: Product used for unknown indication
     Dosage: 10 ORAL TWO TIMES DALLY
     Route: 048
     Dates: start: 20250214
  8. EPIDIOLEX [Concomitant]
     Active Substance: CANNABIDIOL
     Indication: Product used for unknown indication
     Dosage: 4.8 MILLIGRAM, 2X/DAY (BID)
     Dates: start: 20241223
  9. POTASSIUM CHLORIDE [Concomitant]
     Active Substance: POTASSIUM CHLORIDE
     Indication: Product used for unknown indication
     Dosage: 7.5 MILLILITER, 2X/DAY (BID)
  10. BOTOX [Concomitant]
     Active Substance: ONABOTULINUMTOXINA
     Indication: Muscle spasticity
     Dates: start: 20240508
  11. BOTOX [Concomitant]
     Active Substance: ONABOTULINUMTOXINA
     Dates: start: 20250312
  12. MIRALAX [Concomitant]
     Active Substance: POLYETHYLENE GLYCOL 3350
     Indication: Product used for unknown indication
     Route: 048
  13. PROBIOTIC ACIDOPHILUS XTRA [Concomitant]
     Indication: Product used for unknown indication
     Route: 048
  14. STOOL SOFTENER (DOCUSATE) [Concomitant]
     Active Substance: DOCUSATE
     Indication: Product used for unknown indication
     Route: 048
  15. MEDIUM-CHAIN TRIGLYCERIDES [Concomitant]
     Active Substance: MEDIUM-CHAIN TRIGLYCERIDES
     Indication: Product used for unknown indication
  16. MORTON SALT SUBSTITUTE [Concomitant]
     Indication: Product used for unknown indication
  17. VALTOCO [Concomitant]
     Active Substance: DIAZEPAM
     Indication: Seizure
     Route: 045
     Dates: start: 20240626
  18. CRANBERRYNE [Concomitant]
     Indication: Product used for unknown indication
     Dosage: 500 MILLIGRAM, 2X/DAY (BID)

REACTIONS (4)
  - Nephrolithiasis [Unknown]
  - Renal stone removal [Unknown]
  - Seizure [Unknown]
  - Coating in mouth [Not Recovered/Not Resolved]

NARRATIVE: CASE EVENT DATE: 20210712
